FAERS Safety Report 5346182-9 (Version None)
Quarter: 2007Q2

REPORT INFORMATION
  Report Type: 
  Country: None (occurrence: None)
  Receive Date: 20070601
  Receipt Date: 20070518
  Transmission Date: 20071010
  Serious: Yes (Other)
  Sender: FDA-Public Use
  Company Number: 2007S1000131

PATIENT
  Age: 35 Year
  Sex: Male

DRUGS (1)
  1. ACITRETIN [Suspect]
     Indication: EXFOLIATIVE RASH
     Dosage: 10 MG; ; PO
     Route: 048

REACTIONS (4)
  - BLOOD FOLLICLE STIMULATING HORMONE INCREASED [None]
  - INFERTILITY [None]
  - SPERM COUNT DECREASED [None]
  - SPERMATOZOA PROGRESSIVE MOTILITY DECREASED [None]
